FAERS Safety Report 10412991 (Version 4)
Quarter: 2014Q3

REPORT INFORMATION
  Report Type: Report from Study
  Country: US (occurrence: US)
  Receive Date: 20140827
  Receipt Date: 20140923
  Transmission Date: 20150326
  Serious: Yes (Life-Threatening, Other)
  Sender: FDA-Public Use
  Company Number: US-JNJFOC-20140823660

PATIENT
  Age: 78 Year
  Sex: Male

DRUGS (2)
  1. HUMAN CLOTTABLE PROTEIN/HUMAN THROMBIN [Suspect]
     Active Substance: FIBRINOGEN HUMAN\THROMBIN HUMAN
     Route: 065
  2. HUMAN CLOTTABLE PROTEIN/HUMAN THROMBIN [Suspect]
     Active Substance: FIBRINOGEN HUMAN\THROMBIN HUMAN
     Indication: AORTIC SURGERY
     Route: 065
     Dates: start: 20140818, end: 20140818

REACTIONS (10)
  - Atrial fibrillation [None]
  - Blood urea increased [None]
  - Procedural hypotension [None]
  - Pleural effusion [None]
  - Blood creatinine increased [None]
  - Haemodialysis [None]
  - Mediastinal haemorrhage [Recovered/Resolved]
  - Diastolic dysfunction [None]
  - Pneumonia [None]
  - Platelet count decreased [None]

NARRATIVE: CASE EVENT DATE: 20140819
